FAERS Safety Report 6191042-7 (Version None)
Quarter: 2009Q2

REPORT INFORMATION
  Report Type: 
  Country: None (occurrence: None)
  Receive Date: 20090513
  Receipt Date: 20090428
  Transmission Date: 20091009
  Serious: Yes (Hospitalization, Disabling)
  Sender: FDA-Public Use
  Company Number: CIP06000189

PATIENT
  Age: 80 Year
  Sex: Female

DRUGS (20)
  1. ACTONEL [Suspect]
     Dosage: 35 MG ONCE WEEKLY, ORAL
     Route: 048
     Dates: start: 20040101
  2. ACTONEL [Suspect]
     Dosage: 30 MG ONCE WEEKLY, ORAL
     Route: 048
  3. ACTONEL [Suspect]
     Dates: end: 20050301
  4. FOSAMAX [Suspect]
     Dosage: 35 MG ONCE WEEKLY, ORAL
     Route: 048
  5. CALCIUM (CALCIUM) [Concomitant]
  6. SYNTHROID [Concomitant]
  7. AMLODIPINE [Concomitant]
  8. PREMARIN [Concomitant]
  9. HYDROCHLOROTHIAZIDE [Concomitant]
  10. ZYRTEC [Concomitant]
  11. PREVACID [Concomitant]
  12. DETROL LA [Concomitant]
  13. ADVAIR DISKUS 100/50 [Concomitant]
  14. ALBUTEROL /00139501/ (SALBUTAMOL) [Concomitant]
  15. CLONIDINE [Concomitant]
  16. NEURONTIN [Concomitant]
  17. QUININE (QUININE) [Concomitant]
  18. OSCAL /00108001/ (CALCIUM CARBONATE) [Concomitant]
  19. PROTONIX [Concomitant]
  20. DITROPAN [Concomitant]

REACTIONS (14)
  - BRUXISM [None]
  - EAR PAIN [None]
  - FACIAL PAIN [None]
  - GINGIVAL PAIN [None]
  - GINGIVAL SWELLING [None]
  - JAW DISORDER [None]
  - OSTEONECROSIS [None]
  - OSTEOPOROSIS [None]
  - PAIN IN JAW [None]
  - POST PROCEDURAL COMPLICATION [None]
  - TOOTH DISORDER [None]
  - TOOTH EXTRACTION [None]
  - TRIGEMINAL NEURALGIA [None]
  - UNEVALUABLE EVENT [None]
